FAERS Safety Report 7524982-4 (Version None)
Quarter: 2011Q2

REPORT INFORMATION
  Report Type: 
  Country: None (occurrence: None)
  Receive Date: 20110606
  Receipt Date: 20110531
  Transmission Date: 20111010
  Serious: Yes (Death)
  Sender: FDA-Public Use
  Company Number: US-ASTELLAS-2011US001262

PATIENT
  Sex: Female
  Weight: 87 kg

DRUGS (1)
  1. MYCAMINE [Suspect]
     Indication: CANDIDIASIS
     Dosage: 100 MG, UID/QD
     Route: 042
     Dates: start: 20100608, end: 20110117

REACTIONS (1)
  - DEATH [None]
